FAERS Safety Report 8381404-1 (Version None)
Quarter: 2012Q2

REPORT INFORMATION
  Report Type: 
  Country: None (occurrence: None)
  Receive Date: 20120523
  Receipt Date: 20111129
  Transmission Date: 20120825
  Serious: Yes (Hospitalization)
  Sender: FDA-Public Use
  Company Number: US-ROCHE-797950

PATIENT
  Sex: Female

DRUGS (3)
  1. OXALIPLATIN [Suspect]
     Indication: PRODUCT USED FOR UNKNOWN INDICATION
  2. XELODA [Suspect]
     Indication: PRODUCT USED FOR UNKNOWN INDICATION
  3. AVASTIN [Suspect]
     Indication: COLORECTAL CANCER METASTATIC
     Route: 042
     Dates: start: 20110516, end: 20110808

REACTIONS (2)
  - SMALL INTESTINAL OBSTRUCTION [None]
  - HERPES ZOSTER [None]
